FAERS Safety Report 6146272-7 (Version None)
Quarter: 2009Q2

REPORT INFORMATION
  Report Type: 
  Country: None (occurrence: None)
  Receive Date: 20090406
  Receipt Date: 20090406
  Transmission Date: 20091009
  Serious: No
  Sender: FDA-Public Use
  Company Number: None

PATIENT
  Age: 77 Year
  Sex: Female
  Weight: 58.9676 kg

DRUGS (2)
  1. ADENOSINE [Suspect]
     Indication: CARDIAC STRESS TEST
     Dosage: TWO DOSES AT SAME TIME INTRAVENOUS
     Route: 042
  2. LEXISCAN [Suspect]

REACTIONS (14)
  - APPARENT DEATH [None]
  - ASTHENIA [None]
  - BREAST PAIN [None]
  - EYE PAIN [None]
  - FACIAL PAIN [None]
  - FEELING ABNORMAL [None]
  - HEADACHE [None]
  - NAUSEA [None]
  - PAIN [None]
  - PAIN IN EXTREMITY [None]
  - PAIN IN JAW [None]
  - PHARYNGEAL OEDEMA [None]
  - TOOTHACHE [None]
  - VOMITING [None]
